FAERS Safety Report 8825772 (Version 2)
Quarter: 2012Q4

REPORT INFORMATION
  Report Type: 
  Country: US (occurrence: US)
  Receive Date: 20121004
  Receipt Date: 20121019
  Transmission Date: 20130627
  Serious: No
  Sender: FDA-Public Use
  Company Number: US-B.I. PHARMACEUTICALS,INC./RIDGEFIELD-2012-BP-23827BP

PATIENT
  Age: 51 Year
  Sex: Female
  Weight: 113 kg

DRUGS (14)
  1. SPIRIVA [Suspect]
     Indication: WHEEZING
     Dosage: 18 mcg
     Route: 055
     Dates: start: 20120918
  2. PRADAXA [Suspect]
     Indication: ANTICOAGULANT THERAPY
     Dosage: 300 mg
     Route: 048
     Dates: start: 201206
  3. LITHIUM [Concomitant]
     Indication: DEPRESSION
     Dosage: 300 mg
     Route: 048
     Dates: start: 20120926
  4. WELLBUTRIN [Concomitant]
     Indication: DEPRESSION
     Dosage: 450 mg
     Route: 048
     Dates: start: 2009
  5. METOPROLOL [Concomitant]
     Indication: CARDIAC DISORDER
     Dosage: 100 mg
     Route: 048
     Dates: start: 201206
  6. ASPIRIN [Concomitant]
     Indication: CARDIAC DISORDER
     Dosage: 81 mg
     Route: 048
     Dates: start: 201206
  7. GLIMEPIRIDE [Concomitant]
     Indication: CARDIAC DISORDER
     Dosage: 1 mg
     Route: 048
     Dates: start: 201206
  8. METFORMIN [Concomitant]
     Indication: DIABETES MELLITUS
     Dosage: 2000 mg
     Route: 048
     Dates: start: 201206
  9. AMIODARONE [Concomitant]
     Indication: CARDIAC DISORDER
     Dosage: 400 mg
     Route: 048
     Dates: start: 201205
  10. WOMENS VITAMIN [Concomitant]
     Indication: CARDIAC DISORDER
     Route: 048
  11. IRON [Concomitant]
     Indication: CARDIAC DISORDER
     Route: 048
     Dates: start: 201206
  12. CYMBALTA [Concomitant]
     Indication: DEPRESSION
     Dosage: 60 mg
     Route: 048
     Dates: start: 2009
  13. ATORVASTATIN [Concomitant]
     Indication: BLOOD CHOLESTEROL INCREASED
     Dosage: 40 mg
     Route: 048
     Dates: start: 201206
  14. LAMOTRIGINE [Concomitant]
     Indication: DEPRESSION
     Dosage: 200 mg
     Route: 048
     Dates: start: 2008

REACTIONS (2)
  - Wheezing [Recovered/Resolved]
  - Product quality issue [Unknown]
